FAERS Safety Report 25165329 (Version 1)
Quarter: 2025Q2

REPORT INFORMATION
  Report Type: Spontaneous
  Country: CA (occurrence: CA)
  Receive Date: 20250407
  Receipt Date: 20250407
  Transmission Date: 20250716
  Serious: Yes (Other)
  Sender: INTERCEPT PHARMACEUTICALS
  Company Number: CA-ADVANZ PHARMA-202501000405

PATIENT
  Sex: Male

DRUGS (1)
  1. OBETICHOLIC ACID [Suspect]
     Active Substance: OBETICHOLIC ACID
     Indication: Primary biliary cholangitis
     Route: 048
     Dates: start: 20240326

REACTIONS (3)
  - Tuberculosis [Unknown]
  - Alanine aminotransferase abnormal [Unknown]
  - Blood bilirubin increased [Unknown]
